FAERS Safety Report 5924213-2 (Version None)
Quarter: 2008Q4

REPORT INFORMATION
  Report Type: 
  Country: None (occurrence: None)
  Receive Date: 20081020
  Receipt Date: 20081010
  Transmission Date: 20090506
  Serious: Yes (Other)
  Sender: FDA-Public Use
  Company Number: US-JNJCH-2008051830

PATIENT
  Age: 59 Year
  Sex: Female
  Weight: 52.2 kg

DRUGS (3)
  1. ROGAINE [Suspect]
     Indication: ALOPECIA
     Dosage: TEXT:1 ML 2 X A DAY
     Route: 061
     Dates: start: 20080101, end: 20081010
  2. FOSAMAX [Concomitant]
     Dosage: TEXT:UNSPECIFIED
     Route: 065
  3. MULTI-VITAMINS [Concomitant]
     Dosage: TEXT:UNSPECIFIED
     Route: 065

REACTIONS (1)
  - MYODESOPSIA [None]
